FAERS Safety Report 8886170 (Version 1)
Quarter: 2012Q4

REPORT INFORMATION
  Report Type: 
  Country: PL (occurrence: PL)
  Receive Date: 20121105
  Receipt Date: 20121105
  Transmission Date: 20130627
  Serious: Yes (Death)
  Sender: FDA-Public Use
  Company Number: PL-BAXTER-2012BAX021754

PATIENT
  Age: 44 Year
  Sex: Male

DRUGS (3)
  1. DIANEAL PD4 GLUCOSE 2,27 % W/V [Suspect]
     Indication: AUTOMATED PERITONEAL DIALYSIS
     Route: 033
  2. DIANEAL PD4 (GLUKOZA 3,86%) ZESTAW [Suspect]
     Indication: AUTOMATED PERITONEAL DIALYSIS
     Route: 033
  3. EXTRANEAL ZESTAW DO DIALIZY OTRZEWNOWEJ [Suspect]
     Indication: AUTOMATED PERITONEAL DIALYSIS
     Route: 033

REACTIONS (1)
  - Death [Fatal]
